FAERS Safety Report 19986892 (Version 1)
Quarter: 2021Q4

REPORT INFORMATION
  Report Type: Spontaneous
  Country: AT (occurrence: AT)
  Receive Date: 20211022
  Receipt Date: 20211022
  Transmission Date: 20220303
  Serious: Yes (Other)
  Sender: FDA-Public Use
  Company Number: AT-ROCHE-2928311

PATIENT
  Sex: Female

DRUGS (2)
  1. TRASTUZUMAB [Suspect]
     Active Substance: TRASTUZUMAB
     Indication: Product used for unknown indication
     Dosage: UNK
     Route: 065
  2. PERTUZUMAB [Suspect]
     Active Substance: PERTUZUMAB
     Indication: Product used for unknown indication
     Dosage: UNK
     Route: 065

REACTIONS (10)
  - Angina pectoris [Unknown]
  - Cardiac flutter [Unknown]
  - Muscle spasms [Unknown]
  - Pain [Unknown]
  - Joint stiffness [Unknown]
  - Gait disturbance [Unknown]
  - Headache [Unknown]
  - Arthralgia [Unknown]
  - Paraesthesia [Unknown]
  - Off label use [Unknown]
